FAERS Safety Report 8697545 (Version 2)
Quarter: 2012Q4

REPORT INFORMATION
  Report Type: 
  Country: US (occurrence: US)
  Receive Date: 20120801
  Receipt Date: 20121005
  Transmission Date: 20130627
  Serious: Yes (Disabling)
  Sender: FDA-Public Use
  Company Number: US-ASTRAZENECA-2012SE50979

PATIENT
  Age: 46 Year
  Sex: Female
  Weight: 76.2 kg

DRUGS (40)
  1. NEXIUM [Suspect]
     Indication: PEPTIC ULCER
     Route: 048
     Dates: start: 2007
  2. NEXIUM [Suspect]
     Indication: PEPTIC ULCER
     Route: 048
  3. OMEPRAZOLE [Suspect]
     Route: 048
  4. SEROQUEL XR [Suspect]
     Indication: BIPOLAR DISORDER
     Route: 048
     Dates: start: 201205
  5. SEROQUEL XR [Suspect]
     Indication: BIPOLAR DISORDER
     Route: 048
     Dates: start: 20120925
  6. CRESTOR [Suspect]
     Indication: BLOOD CHOLESTEROL INCREASED
     Route: 048
     Dates: start: 20120606
  7. CRESTOR [Suspect]
     Indication: ARTERIOSCLEROSIS
     Route: 048
     Dates: start: 20120606
  8. CRESTOR [Suspect]
     Indication: BLOOD CHOLESTEROL INCREASED
     Route: 048
  9. CRESTOR [Suspect]
     Indication: ARTERIOSCLEROSIS
     Route: 048
  10. CRESTOR [Suspect]
     Indication: BLOOD CHOLESTEROL INCREASED
     Route: 048
     Dates: start: 2009
  11. CRESTOR [Suspect]
     Indication: ARTERIOSCLEROSIS
     Route: 048
     Dates: start: 2009
  12. CRESTOR [Suspect]
     Indication: BLOOD CHOLESTEROL INCREASED
     Route: 048
  13. CRESTOR [Suspect]
     Indication: ARTERIOSCLEROSIS
     Route: 048
  14. BUPROPION HCL XL [Concomitant]
     Route: 048
  15. CLONAZEPAM [Concomitant]
     Route: 048
  16. EX-LAX CHOCOLATE [Concomitant]
  17. GABAPENTIN [Concomitant]
     Indication: FIBROMYALGIA
  18. HYDROMORPHONE [Concomitant]
     Indication: FIBROMYALGIA
     Dosage: TAKE 2 TABLETS EVERY 4 - 6 HRS
  19. LAMOTRIGINE [Concomitant]
     Route: 048
  20. TIZANIDINE HCL [Concomitant]
     Indication: MUSCLE RELAXANT THERAPY
     Route: 048
     Dates: start: 2007
  21. TRAMADOL HCL [Concomitant]
     Route: 048
  22. ZOLPIDEM TART ER [Concomitant]
     Route: 048
  23. PANTOPRAZOLE SOD DR [Concomitant]
     Route: 048
  24. FENOFIBRATE [Concomitant]
  25. LACTULOSE [Concomitant]
     Dosage: 10 GM/ 15 ML
  26. LORAZEPAM [Concomitant]
     Route: 048
  27. ADVIL MIGRAINE [Concomitant]
  28. RA TRIPLE ANTIBIOTIC [Concomitant]
  29. NABUMETONE [Concomitant]
     Indication: ANTIINFLAMMATORY THERAPY
     Route: 048
  30. NABUMETONE [Concomitant]
     Indication: ANTIINFLAMMATORY THERAPY
     Route: 048
     Dates: start: 2008
  31. HERPECIN L STICK [Concomitant]
  32. OXYCODONE W/APAP [Concomitant]
     Indication: FIBROMYALGIA
     Dosage: 10/325, 1 TAB EVERY 4 HOURLY
     Route: 048
  33. AZITHROMYCIN [Concomitant]
     Route: 048
  34. VENTOLIN HFA [Concomitant]
     Dosage: 90 MCG, 2 PUFFS EVERY 4 HRLY
     Route: 055
  35. SUMATRIPTAN SUCC [Concomitant]
  36. SUPER POIGRIP [Concomitant]
  37. EXCEDRIN MIGRAINE GELTAB [Concomitant]
  38. TRAZODONE [Concomitant]
     Route: 048
  39. LAMICTAL [Concomitant]
     Indication: AFFECTIVE DISORDER
     Route: 048
     Dates: start: 201205
  40. KLONOPIN [Concomitant]
     Indication: ANXIETY
     Route: 048
     Dates: start: 201205

REACTIONS (14)
  - Anxiety [Unknown]
  - Depression [Unknown]
  - Malaise [Unknown]
  - Vomiting [Unknown]
  - Nausea [Unknown]
  - Ulcer [Not Recovered/Not Resolved]
  - Fibromyalgia [Unknown]
  - Malaise [Unknown]
  - Weight increased [Unknown]
  - Muscular weakness [Unknown]
  - Adverse drug reaction [Unknown]
  - Dizziness [Unknown]
  - Intentional drug misuse [Unknown]
  - Off label use [Unknown]
